FAERS Safety Report 12396942 (Version 1)
Quarter: 2016Q2

REPORT INFORMATION
  Report Type: Spontaneous
  Country: US (occurrence: None)
  Receive Date: 20160523
  Receipt Date: 20160523
  Transmission Date: 20160815
  Serious: Yes (Disabling)
  Sender: FDA-Public Use
  Company Number: None

PATIENT
  Age: 54 Year
  Sex: Female
  Weight: 81.65 kg

DRUGS (1)
  1. BELVIQ [Suspect]
     Active Substance: LORCASERIN HYDROCHLORIDE
     Indication: WEIGHT DECREASED
     Dosage: 60 TABLET(S) ONCE A DAY TAKEN BY MOUTH
     Route: 048
     Dates: start: 20160516, end: 20160519

REACTIONS (7)
  - Fatigue [None]
  - Vision blurred [None]
  - Insomnia [None]
  - Dyspnoea [None]
  - Muscular weakness [None]
  - Dissociative disorder [None]
  - Gait disturbance [None]

NARRATIVE: CASE EVENT DATE: 20160518
